FAERS Safety Report 22013710 (Version 1)
Quarter: 2023Q1

REPORT INFORMATION
  Report Type: Report from Study
  Country: VN (occurrence: VN)
  Receive Date: 20230221
  Receipt Date: 20230221
  Transmission Date: 20230418
  Serious: Yes (Other)
  Sender: FDA-Public Use
  Company Number: VN-JNJFOC-20230131231

PATIENT
  Age: 53 Year
  Sex: Male

DRUGS (1)
  1. DARZALEX [Suspect]
     Active Substance: DARATUMUMAB
     Indication: Plasma cell myeloma refractory
     Dosage: NEXT DOSE: 17-JAN-2023. ?DELAYED BY 4 DAYS.
     Route: 042
     Dates: start: 20230110

REACTIONS (3)
  - Pneumonia [Unknown]
  - Leukopenia [Unknown]
  - Inappropriate schedule of product administration [Unknown]

NARRATIVE: CASE EVENT DATE: 20230113
